FAERS Safety Report 15033976 (Version 1)
Quarter: 2018Q2

REPORT INFORMATION
  Report Type: Spontaneous
  Country: FR (occurrence: FR)
  Receive Date: 20180620
  Receipt Date: 20180620
  Transmission Date: 20180711
  Serious: Yes (Hospitalization)
  Sender: FDA-Public Use
  Company Number: FR-SUN PHARMACEUTICAL INDUSTRIES LTD-2018RR-176074

PATIENT
  Age: 70 Year
  Sex: Male

DRUGS (6)
  1. VESICARE [Suspect]
     Active Substance: SOLIFENACIN SUCCINATE
     Indication: URINARY INCONTINENCE
     Dosage: 5 MG, UNK
     Route: 048
     Dates: start: 201610, end: 20170725
  2. LOPERAMIDE [Suspect]
     Active Substance: LOPERAMIDE
     Indication: DIARRHOEA
     Dosage: 2 DF, UNK
     Route: 048
     Dates: start: 20170711, end: 20170725
  3. NAUSICALM (DIMENHYDRINATE) [Suspect]
     Active Substance: DIMENHYDRINATE
     Indication: NAUSEA
     Dosage: 3 DF, UNK
     Route: 048
     Dates: start: 20170711, end: 20170728
  4. BACTRIM [Suspect]
     Active Substance: SULFAMETHOXAZOLE\TRIMETHOPRIM
     Indication: PROSTATITIS
     Dosage: NON PRECISEE ()
     Route: 048
     Dates: start: 20170725, end: 20170728
  5. DOMPERIDONE [Concomitant]
     Active Substance: DOMPERIDONE
     Indication: NAUSEA
     Dosage: IN TOTAL
     Route: 048
     Dates: start: 20170728, end: 20170728
  6. TIORFAN 100 MG, GELULE [Suspect]
     Active Substance: RACECADOTRIL
     Indication: DIARRHOEA
     Dosage: 3 DF, UNK
     Route: 048
     Dates: start: 20170725, end: 20170728

REACTIONS (2)
  - Hepatocellular injury [Recovered/Resolved]
  - Transaminases increased [Recovered/Resolved]

NARRATIVE: CASE EVENT DATE: 20170728
